FAERS Safety Report 17922507 (Version 1)
Quarter: 2020Q2

REPORT INFORMATION
  Report Type: Spontaneous
  Country: US (occurrence: US)
  Receive Date: 20200622
  Receipt Date: 20200622
  Transmission Date: 20200714
  Serious: No
  Sender: FDA-Public Use
  Company Number: US-PFIZER INC-2020239488

PATIENT
  Age: 47 Year
  Sex: Female
  Weight: 42.18 kg

DRUGS (1)
  1. DESVENLAFAXINE SUCCINATE MONOHYDRATE [Suspect]
     Active Substance: DESVENLAFAXINE SUCCINATE
     Indication: DEPRESSION
     Dosage: 100 MG, 1X/DAY
     Route: 048

REACTIONS (4)
  - Fatigue [Unknown]
  - Mood altered [Unknown]
  - Asthenia [Unknown]
  - Hypersomnia [Unknown]
